FAERS Safety Report 5472602-5 (Version None)
Quarter: 2007Q4

REPORT INFORMATION
  Report Type: 
  Country: None (occurrence: None)
  Receive Date: 20071001
  Receipt Date: 20060525
  Transmission Date: 20080405
  Serious: No
  Sender: FDA-Public Use
  Company Number: US-ASTRAZENECA-2006UW10235

PATIENT
  Age: 52 Year
  Sex: Female

DRUGS (1)
  1. ARIMIDEX [Suspect]
     Indication: PROPHYLACTIC CHEMOTHERAPY
     Route: 048
     Dates: start: 20060512

REACTIONS (3)
  - ANXIETY [None]
  - LIVER FUNCTION TEST ABNORMAL [None]
  - TREMOR [None]
